FAERS Safety Report 8882587 (Version 1)
Quarter: 2012Q4

REPORT INFORMATION
  Report Type: Report from Study
  Country: CA (occurrence: CA)
  Receive Date: 20121102
  Receipt Date: 20121102
  Transmission Date: 20130627
  Serious: Yes (Other)
  Sender: FDA-Public Use
  Company Number: CA-JNJFOC-20121013105

PATIENT
  Age: 61 None
  Sex: Female
  Weight: 50.8 kg

DRUGS (7)
  1. REMICADE [Suspect]
     Indication: PSORIATIC ARTHROPATHY
     Route: 042
     Dates: start: 20120522
  2. REMICADE [Suspect]
     Indication: PSORIATIC ARTHROPATHY
     Route: 042
     Dates: start: 20120830
  3. TYLENOL 3 [Concomitant]
     Route: 065
  4. ATIVAN [Concomitant]
     Route: 065
  5. ACTONEL [Concomitant]
     Route: 065
  6. VENTOLIN [Concomitant]
     Route: 065
  7. SYMBICORT [Concomitant]
     Route: 065

REACTIONS (2)
  - Dental operation [Unknown]
  - Pain [Not Recovered/Not Resolved]
